FAERS Safety Report 6146182-5 (Version None)
Quarter: 2009Q2

REPORT INFORMATION
  Report Type: 
  Country: None (occurrence: None)
  Receive Date: 20090407
  Receipt Date: 20090327
  Transmission Date: 20091009
  Serious: Yes (Hospitalization, Other)
  Sender: FDA-Public Use
  Company Number: RS-NOVOPROD-284804

PATIENT
  Sex: Male
  Weight: 3.05 kg

DRUGS (5)
  1. NOVORAPID [Suspect]
     Indication: TYPE 1 DIABETES MELLITUS
     Dosage: 24 UNK, UNK
     Route: 064
     Dates: start: 20071201, end: 20081030
  2. LEVEMIR [Suspect]
     Indication: TYPE 1 DIABETES MELLITUS
     Dosage: 12 UNK, UNK
     Route: 064
     Dates: start: 20071201, end: 20081030
  3. HEFEROL                            /00023505/ [Concomitant]
     Indication: ANAEMIA
     Dosage: 2 UNK, QD
     Route: 064
     Dates: start: 20080730, end: 20081030
  4. FOLAN [Concomitant]
     Dosage: 2 UNK, QD
     Route: 064
     Dates: start: 20080730, end: 20081030
  5. EUTHYROX [Concomitant]
     Indication: HYPOTHYROIDISM
     Dosage: 25 MEQ, QD
     Route: 064
     Dates: start: 20080730, end: 20081030

REACTIONS (4)
  - DIABETIC FOETOPATHY [None]
  - FOETAL MACROSOMIA [None]
  - JAUNDICE NEONATAL [None]
  - NEONATAL ASPHYXIA [None]
